FAERS Safety Report 23081192 (Version 1)
Quarter: 2023Q4

REPORT INFORMATION
  Report Type: Spontaneous
  Country: MX (occurrence: None)
  Receive Date: 20231018
  Receipt Date: 20231018
  Transmission Date: 20240110
  Serious: Yes (Other)
  Sender: FDA-Public Use
  Company Number: 2023A233717

PATIENT

DRUGS (1)
  1. DAPAGLIFLOZIN [Suspect]
     Active Substance: DAPAGLIFLOZIN
     Route: 048

REACTIONS (3)
  - Loss of consciousness [Unknown]
  - Dizziness [Unknown]
  - Nausea [Unknown]
